FAERS Safety Report 15757140 (Version 2)
Quarter: 2018Q4

REPORT INFORMATION
  Report Type: Spontaneous
  Country: US (occurrence: US)
  Receive Date: 20181224
  Receipt Date: 20181231
  Transmission Date: 20190205
  Serious: No
  Sender: FDA-Public Use
  Company Number: US-JNJFOC-20181138553

PATIENT
  Age: 71 Year
  Sex: Female
  Weight: 63.5 kg

DRUGS (2)
  1. WOMENS ROGAINE UNSCENTED [Suspect]
     Active Substance: MINOXIDIL
     Route: 061
  2. WOMENS ROGAINE UNSCENTED [Suspect]
     Active Substance: MINOXIDIL
     Indication: ALOPECIA
     Dosage: AT LEAST HALF A CAP;??ONCE A DAY AT NIGHT
     Route: 061
     Dates: start: 20180904

REACTIONS (4)
  - Product formulation issue [Unknown]
  - Skin burning sensation [Recovered/Resolved]
  - Poor quality product administered [Unknown]
  - Overdose [Unknown]

NARRATIVE: CASE EVENT DATE: 20181117
